FAERS Safety Report 5688329-0 (Version None)
Quarter: 2008Q1

REPORT INFORMATION
  Report Type: 
  Country: None (occurrence: None)
  Receive Date: 20080328
  Receipt Date: 20080328
  Transmission Date: 20080703
  Serious: No
  Sender: FDA-Public Use
  Company Number: None

PATIENT
  Age: 11 Year
  Sex: Female
  Weight: 47.1741 kg

DRUGS (1)
  1. SINGULAIR [Suspect]
     Indication: SEASONAL ALLERGY
     Dosage: 1X A DAY  1  PO
     Route: 048
     Dates: start: 20070501, end: 20080328

REACTIONS (2)
  - ABNORMAL BEHAVIOUR [None]
  - ANXIETY [None]
